FAERS Safety Report 7514718-5 (Version None)
Quarter: 2011Q2

REPORT INFORMATION
  Report Type: 
  Country: None (occurrence: None)
  Receive Date: 20110601
  Receipt Date: 20110512
  Transmission Date: 20111010
  Serious: Yes (Hospitalization, Other)
  Sender: FDA-Public Use
  Company Number: US-BAYER-201037902NA

PATIENT
  Age: 24 Year
  Sex: Female
  Weight: 99.77 kg

DRUGS (5)
  1. BUSPIRONE HCL [Suspect]
     Indication: PRODUCT USED FOR UNKNOWN INDICATION
  2. NAPROSYN [Concomitant]
  3. YASMIN [Suspect]
     Indication: PRODUCT USED FOR UNKNOWN INDICATION
     Route: 048
     Dates: start: 20060704
  4. REGLAN [Concomitant]
     Dosage: UNK
     Dates: start: 20070501
  5. PEPCID [Concomitant]
     Dosage: UNK
     Dates: start: 20070501

REACTIONS (2)
  - PANCREATITIS [None]
  - ABDOMINAL PAIN UPPER [None]
